FAERS Safety Report 5262529-6 (Version None)
Quarter: 2007Q1

REPORT INFORMATION
  Report Type: 
  Country: None (occurrence: None)
  Receive Date: 20070308
  Receipt Date: 20070308
  Transmission Date: 20070707
  Serious: Yes (Hospitalization)
  Sender: FDA-Public Use
  Company Number: None

PATIENT
  Sex: Male
  Weight: 104.1 kg

DRUGS (2)
  1. GEMCITABINE [Suspect]
     Indication: SMALL CELL LUNG CANCER STAGE UNSPECIFIED
     Dosage: 1603 MG  WEEKLY X 2  IV
     Route: 042
     Dates: start: 20070130
  2. PS341  1.3 MG/M2 [Suspect]
     Indication: SMALL CELL LUNG CANCER STAGE UNSPECIFIED
     Dosage: 3 MG  TWICE A WEEK X 2 WEEKS  IV
     Route: 042
     Dates: start: 20070130

REACTIONS (7)
  - AUTONOMIC NERVOUS SYSTEM IMBALANCE [None]
  - DIZZINESS [None]
  - HEAD INJURY [None]
  - INCONTINENCE [None]
  - ORTHOSTATIC HYPOTENSION [None]
  - SKIN LACERATION [None]
  - SYNCOPE [None]
